FAERS Safety Report 10348276 (Version 2)
Quarter: 2014Q3

REPORT INFORMATION
  Report Type: Spontaneous
  Country: IT (occurrence: IT)
  Receive Date: 20140729
  Receipt Date: 20140821
  Transmission Date: 20150326
  Serious: Yes (Hospitalization)
  Sender: FDA-Public Use
  Company Number: IT-GLAXOSMITHKLINE-B1018592A

PATIENT
  Age: 87 Year
  Sex: Female

DRUGS (7)
  1. RAMIPRIL/HIDROCLOROTIAZIDA [Concomitant]
     Indication: HYPERTENSION
     Route: 048
     Dates: end: 20140525
  2. AZOPT [Concomitant]
     Active Substance: BRINZOLAMIDE
     Indication: GLAUCOMA
     Route: 047
     Dates: end: 20140525
  3. DUOTRAV [Concomitant]
     Active Substance: TIMOLOL\TRAVOPROST
     Indication: GLAUCOMA
     Route: 047
     Dates: end: 20140525
  4. RYTHMOL [Suspect]
     Active Substance: PROPAFENONE HYDROCHLORIDE
     Indication: ATRIAL FIBRILLATION
     Dosage: 325MG PER DAY
     Route: 048
     Dates: start: 20140525, end: 20140525
  5. EUTIROX [Concomitant]
     Active Substance: LEVOTHYROXINE SODIUM
     Indication: HYPOTHYROIDISM
     Route: 048
     Dates: end: 20140524
  6. EUTIROX [Concomitant]
     Active Substance: LEVOTHYROXINE SODIUM
     Indication: HYPOTHYROIDISM
     Route: 048
     Dates: end: 20140525
  7. COUMADIN [Concomitant]
     Active Substance: WARFARIN SODIUM
     Indication: ATRIAL FIBRILLATION
     Route: 048
     Dates: end: 20140525

REACTIONS (3)
  - Bradycardia [Recovered/Resolved]
  - Dyspnoea [Recovered/Resolved]
  - Respiratory rate increased [Recovered/Resolved]

NARRATIVE: CASE EVENT DATE: 20140525
